FAERS Safety Report 6245313-6 (Version None)
Quarter: 2009Q2

REPORT INFORMATION
  Report Type: 
  Country: None (occurrence: None)
  Receive Date: 20090625
  Receipt Date: 20090618
  Transmission Date: 20091009
  Serious: Yes (Hospitalization)
  Sender: FDA-Public Use
  Company Number: US-GILEAD-2009-0022460

PATIENT
  Sex: Female
  Weight: 72.64 kg

DRUGS (15)
  1. LETAIRIS [Suspect]
     Indication: PULMONARY ARTERIAL HYPERTENSION
     Route: 048
     Dates: start: 20090602
  2. SILDENAFIL CITRATE [Concomitant]
  3. WARFARIN [Concomitant]
  4. ILOPROST [Concomitant]
  5. DIAMOX [Concomitant]
  6. AZMACORT [Concomitant]
  7. ALBUTEROL [Concomitant]
  8. ATORVASTATIN CALCIUM [Concomitant]
  9. METFORMIN HCL [Concomitant]
  10. CLARITIN [Concomitant]
  11. LEVOTHYROXINE SODIUM [Concomitant]
  12. PROTONIX [Concomitant]
  13. ROXANOL [Concomitant]
  14. MAGNESIUM OXIDE [Concomitant]
  15. SENOKOT [Concomitant]

REACTIONS (3)
  - CARDIAC FAILURE CONGESTIVE [None]
  - HYPOXIA [None]
  - RIGHT VENTRICULAR FAILURE [None]
